FAERS Safety Report 15757052 (Version 1)
Quarter: 2018Q4

REPORT INFORMATION
  Report Type: Spontaneous
  Country: CN (occurrence: CN)
  Receive Date: 20181224
  Receipt Date: 20181224
  Transmission Date: 20190205
  Serious: Yes (Hospitalization, Other)
  Sender: FDA-Public Use
  Company Number: CN-GILEAD-2018-0381448

PATIENT
  Age: 65 Year
  Sex: Female

DRUGS (1)
  1. ADEFOVIR DIPIVOXIL. [Suspect]
     Active Substance: ADEFOVIR DIPIVOXIL
     Indication: HEPATITIS B
     Dosage: 10 MG, QD
     Route: 065

REACTIONS (12)
  - Back pain [Recovering/Resolving]
  - Renal injury [Recovering/Resolving]
  - Blood uric acid decreased [Recovering/Resolving]
  - Hypophosphataemia [Recovering/Resolving]
  - Osteomalacia [Recovering/Resolving]
  - Glucose urine present [Recovering/Resolving]
  - Osteoporosis [Recovering/Resolving]
  - Blood phosphorus decreased [Recovering/Resolving]
  - Pathological fracture [Recovering/Resolving]
  - Protein total decreased [Recovering/Resolving]
  - Blood alkaline phosphatase increased [Recovering/Resolving]
  - Muscular weakness [Recovering/Resolving]
